FAERS Safety Report 6546152-9 (Version None)
Quarter: 2010Q1

REPORT INFORMATION
  Report Type: 
  Country: None (occurrence: None)
  Receive Date: 20100107
  Receipt Date: 20091228
  Transmission Date: 20100710
  Serious: Yes (Other)
  Sender: FDA-Public Use
  Company Number: 2009021803

PATIENT
  Age: 62 Year
  Sex: Male
  Weight: 85 kg

DRUGS (6)
  1. CYTOGAM [Suspect]
     Indication: ANTIVIRAL PROPHYLAXIS
     Dosage: INTRAVENOUS (NOT OTHERWISE SPECIFIED
     Route: 042
     Dates: start: 20091122
  2. METHYLPEDNISOLONE SODIUM SUCCINATE [Suspect]
     Indication: IMMUNOSUPPRESSION
     Dosage: 250 MG TWICE PER DAY AS TAPERING DOSE
     Dates: start: 20091122
  3. METHYLPEDNISOLONE SODIUM SUCCINATE [Suspect]
     Indication: TRANSPLANT REJECTION
     Dosage: 250 MG TWICE PER DAY AS TAPERING DOSE
     Dates: start: 20091122
  4. GANCICLOVIR [Suspect]
     Dosage: INTRAVENOUS (NOT OTHERWISE SPECIFIED)
     Route: 042
     Dates: start: 20091122, end: 20091123
  5. INSULIN (INSULIN) [Concomitant]
  6. PROTONIX [Concomitant]

REACTIONS (3)
  - ANAPHYLACTIC REACTION [None]
  - HAEMORRHAGIC STROKE [None]
  - PULMONARY EMBOLISM [None]
